FAERS Safety Report 4686672-5 (Version None)
Quarter: 2005Q2

REPORT INFORMATION
  Report Type: 
  Country: None (occurrence: None)
  Receive Date: 20050606
  Receipt Date: 20050525
  Transmission Date: 20051028
  Serious: Yes (Hospitalization)
  Sender: FDA-Public Use
  Company Number: DE_050516026

PATIENT
  Age: 34 Year
  Sex: Male

DRUGS (4)
  1. CYMBALTA [Suspect]
     Indication: DEPRESSION
     Dosage: 60 MG DAY
     Dates: start: 20050308, end: 20050310
  2. BERLOFEN (ACECLOFENAC) [Concomitant]
  3. TIZANIDINE HCL [Concomitant]
  4. IMAP (FLUSPIRILENE) [Concomitant]

REACTIONS (1)
  - CONVULSION [None]
